FAERS Safety Report 7922179-7 (Version None)
Quarter: 2011Q4

REPORT INFORMATION
  Report Type: 
  Country: None (occurrence: None)
  Receive Date: 20111117
  Receipt Date: 20110125
  Transmission Date: 20120403
  Serious: No
  Sender: FDA-Public Use
  Company Number: US-AMGEN-USASP2010002691

PATIENT
  Age: 24 Year
  Sex: Female

DRUGS (1)
  1. ENBREL [Suspect]
     Indication: PSORIASIS
     Dosage: 50 MG, QWK
     Route: 058
     Dates: start: 20071201, end: 20101206

REACTIONS (6)
  - VOMITING [None]
  - INSOMNIA [None]
  - PUSTULAR PSORIASIS [None]
  - WEIGHT DECREASED [None]
  - HEADACHE [None]
  - NAUSEA [None]
